FAERS Safety Report 6480149-2 (Version None)
Quarter: 2009Q4

REPORT INFORMATION
  Report Type: 
  Country: None (occurrence: None)
  Receive Date: 20091208
  Receipt Date: 20091126
  Transmission Date: 20100525
  Serious: Yes (Hospitalization, Other)
  Sender: FDA-Public Use
  Company Number: PHHY2009GB39012

PATIENT
  Sex: Male

DRUGS (11)
  1. EXELON [Suspect]
     Dosage: 4.6 MG
     Route: 062
  2. EXELON [Suspect]
     Dosage: 9.6 MG
     Route: 062
  3. EXELON [Suspect]
     Dosage: DOSE REDUCED (UNSPECIFIED)
  4. MIRTAZAPINE [Concomitant]
     Dosage: 30 MG, UNK
  5. ASPIRIN [Concomitant]
     Route: 048
  6. PARACETAMOL [Concomitant]
     Indication: PAIN
     Route: 048
  7. RANITIDINE [Concomitant]
     Indication: PEPTIC ULCER
     Dosage: 150 MG, BID
     Route: 048
  8. DOMPERIDONE [Concomitant]
     Dosage: 10 MG TDS
     Route: 048
  9. DIETHYL-STILBESTROL TAB [Concomitant]
     Indication: PROSTATE CANCER
     Dosage: 1 MG/DAY
     Route: 048
  10. AMISULPRIDE [Concomitant]
     Indication: DELUSION
     Dosage: 25 MG, BID
     Route: 048
  11. FLUTICASONE [Concomitant]
     Route: 045

REACTIONS (2)
  - AGGRESSION [None]
  - AGITATION [None]
